FAERS Safety Report 23946245 (Version 1)
Quarter: 2024Q2

REPORT INFORMATION
  Report Type: Spontaneous
  Country: US (occurrence: None)
  Receive Date: 20240605
  Receipt Date: 20240605
  Transmission Date: 20240716
  Serious: Yes (Hospitalization)
  Sender: FDA-Public Use
  Company Number: None

PATIENT
  Sex: 0

DRUGS (1)
  1. SEMAGLUTIDE [Suspect]
     Active Substance: SEMAGLUTIDE
     Dosage: OTHER FREQUENCY : WEEKLY;?
     Route: 058
     Dates: start: 20240427

REACTIONS (6)
  - Nausea [None]
  - Vomiting [None]
  - Syncope [None]
  - Craniofacial fracture [None]
  - Insurance issue [None]
  - Product dose omission issue [None]

NARRATIVE: CASE EVENT DATE: 20240427
